FAERS Safety Report 9159143 (Version 3)
Quarter: 2014Q4

REPORT INFORMATION
  Report Type: Spontaneous
  Country: US (occurrence: None)
  Receive Date: 20130212
  Receipt Date: 20141105
  Transmission Date: 20150529
  Serious: Yes (Hospitalization)
  Sender: FDA-Public Use
  Company Number: JPI-P-029535

PATIENT
  Age: 60 Year
  Sex: Female
  Weight: 90.9 kg

DRUGS (18)
  1. DONEPEZIL HYDROCHLORIDE (DONEPEZIL HYDROCHLORIDE) [Concomitant]
  2. VITAMIN D (ERGOCALCIFEROL) [Concomitant]
     Active Substance: ERGOCALCIFEROL
  3. INSULIN ASPART (INSULIN ASPART) [Concomitant]
     Active Substance: INSULIN ASPART
  4. ENALAPRIL (ENALAPRIL) [Concomitant]
     Active Substance: ENALAPRIL
  5. METFORMIN [Concomitant]
     Active Substance: METFORMIN HYDROCHLORIDE
  6. CYCLOBENZAPRINE (CYCLOBENZAPRINE) [Concomitant]
     Active Substance: CYCLOBENZAPRINE
  7. ROPINIROLE (ROPINIROLE) [Concomitant]
     Active Substance: ROPINIROLE
  8. XYREM [Suspect]
     Active Substance: SODIUM OXYBATE
     Indication: NARCOLEPSY
     Route: 048
     Dates: start: 200610, end: 200610
  9. IMIPRAMINE (IMIPRAMINE) (IMIPRAMINE) [Concomitant]
     Active Substance: IMIPRAMINE
  10. HYDROCHLOROTHIAZIDE (HYDROCHLOROTHIAZIDE) [Concomitant]
     Active Substance: HYDROCHLOROTHIAZIDE
  11. RANITIDINE [Concomitant]
     Active Substance: RANITIDINE\RANITIDINE HYDROCHLORIDE
  12. INSULIN GLARGINE (INSULIN GLARGINE) [Concomitant]
     Active Substance: INSULIN GLARGINE
  13. SIMVASTATIN (SIMVASTATIN) [Suspect]
     Active Substance: SIMVASTATIN
  14. XYREM [Suspect]
     Active Substance: SODIUM OXYBATE
     Indication: CATAPLEXY
     Route: 048
     Dates: start: 200610, end: 200610
  15. ASPIRIN (ACETYLSALICYLIC ACID) [Concomitant]
     Active Substance: ASPIRIN
  16. FENOFIBRATE (FENOFIBRATE) (FENOFIBRATE) [Concomitant]
     Active Substance: FENOFIBRATE
  17. TRAMADOL (TRAMADOL) [Concomitant]
     Active Substance: TRAMADOL
  18. METHYLPHENIDATE (METHYLPHENIDATE) UNKNOWN [Concomitant]
     Active Substance: METHYLPHENIDATE

REACTIONS (4)
  - Breast cancer [None]
  - Procedural pain [None]
  - Ovarian cyst [None]
  - Hysterectomy [None]

NARRATIVE: CASE EVENT DATE: 2012
